FAERS Safety Report 15052882 (Version 1)
Quarter: 2018Q2

REPORT INFORMATION
  Report Type: Spontaneous
  Country: LV (occurrence: LV)
  Receive Date: 20180622
  Receipt Date: 20180622
  Transmission Date: 20180711
  Serious: Yes (Death, Other)
  Sender: FDA-Public Use
  Company Number: LV-GLAXOSMITHKLINE-LV2018GSK095935

PATIENT
  Age: 50 Year
  Sex: Male

DRUGS (2)
  1. ANORO ELLIPTA [Suspect]
     Active Substance: UMECLIDINIUM BROMIDE\VILANTEROL TRIFENATATE
     Indication: CHRONIC OBSTRUCTIVE PULMONARY DISEASE
     Dosage: UNK
     Route: 055
     Dates: start: 20180507, end: 20180521
  2. VENTOLIN [Suspect]
     Active Substance: ALBUTEROL SULFATE
     Indication: DYSPNOEA
     Dosage: UNK
     Route: 055
     Dates: start: 201712

REACTIONS (2)
  - Bronchospasm [Not Recovered/Not Resolved]
  - Lung neoplasm malignant [Fatal]

NARRATIVE: CASE EVENT DATE: 2018
